FAERS Safety Report 7076880-0 (Version None)
Quarter: 2010Q4

REPORT INFORMATION
  Report Type: 
  Country: None (occurrence: None)
  Receive Date: 20101029
  Receipt Date: 20101029
  Transmission Date: 20110411
  Serious: Yes (Other)
  Sender: FDA-Public Use
  Company Number: None

PATIENT
  Age: 52 Year
  Sex: Female
  Weight: 51.7101 kg

DRUGS (2)
  1. OLEPTRO [Suspect]
     Indication: DEPRESSION
     Dosage: 2 TABLETS DAILY @ BEDTIME PO
     Route: 048
     Dates: start: 20101022, end: 20101027
  2. OLEPTRO [Suspect]
     Indication: SLEEP DISORDER
     Dosage: 2 TABLETS DAILY @ BEDTIME PO
     Route: 048
     Dates: start: 20101022, end: 20101027

REACTIONS (13)
  - ABNORMAL DREAMS [None]
  - CONFUSIONAL STATE [None]
  - DISTURBANCE IN ATTENTION [None]
  - FEELING ABNORMAL [None]
  - HYPERSOMNIA [None]
  - HYPOAESTHESIA ORAL [None]
  - IMPAIRED WORK ABILITY [None]
  - NAUSEA [None]
  - PARAESTHESIA [None]
  - PARAESTHESIA ORAL [None]
  - SEDATION [None]
  - SOMNOLENCE [None]
  - VOMITING [None]
